FAERS Safety Report 5083638-0 (Version None)
Quarter: 2006Q3

REPORT INFORMATION
  Report Type: 
  Country: None (occurrence: None)
  Receive Date: 20060818
  Receipt Date: 20060816
  Transmission Date: 20061208
  Serious: Yes (Hospitalization)
  Sender: FDA-Public Use
  Company Number: 2006CG01362

PATIENT
  Age: 84 Year
  Sex: Female

DRUGS (3)
  1. TENORMIN [Suspect]
     Route: 048
  2. ALDACTAZINE [Suspect]
     Route: 048
  3. SOLU-MEDROL [Suspect]

REACTIONS (2)
  - HYPERGLYCAEMIA [None]
  - HYPOTENSION [None]
